FAERS Safety Report 11431426 (Version 1)
Quarter: 2015Q3

REPORT INFORMATION
  Report Type: Spontaneous
  Country: DE (occurrence: DE)
  Receive Date: 20150828
  Receipt Date: 20150828
  Transmission Date: 20151125
  Serious: Yes (Life-Threatening)
  Sender: FDA-Public Use
  Company Number: DE-FRESENIUS KABI-FK201504119

PATIENT
  Age: 68 Year
  Sex: Female
  Weight: 59 kg

DRUGS (16)
  1. OXALIPLATIN (MANUFACTURER UNKNOWN) [Suspect]
     Active Substance: OXALIPLATIN
     Route: 065
     Dates: start: 201402, end: 201408
  2. LEUCOVORIN. [Suspect]
     Active Substance: LEUCOVORIN
     Indication: PRODUCT USED FOR UNKNOWN INDICATION
     Dates: start: 2010, end: 201010
  3. LEUCOVORIN. [Suspect]
     Active Substance: LEUCOVORIN
     Dates: start: 201402, end: 201408
  4. 5-FU [Suspect]
     Active Substance: FLUOROURACIL
     Dates: start: 201410, end: 201412
  5. 5-FU [Suspect]
     Active Substance: FLUOROURACIL
     Dates: start: 20150114
  6. 5-FU [Suspect]
     Active Substance: FLUOROURACIL
     Indication: PRODUCT USED FOR UNKNOWN INDICATION
     Dates: start: 200907, end: 200907
  7. 5-FU [Suspect]
     Active Substance: FLUOROURACIL
     Dates: start: 201402, end: 201408
  8. 5-FU [Suspect]
     Active Substance: FLUOROURACIL
     Dates: start: 201502, end: 201503
  9. OXALIPLATIN (MANUFACTURER UNKNOWN) [Suspect]
     Active Substance: OXALIPLATIN
     Route: 065
     Dates: start: 2010, end: 201010
  10. 5-FU [Suspect]
     Active Substance: FLUOROURACIL
     Dates: start: 201505, end: 201506
  11. LEUCOVORIN. [Suspect]
     Active Substance: LEUCOVORIN
     Dates: start: 201502, end: 201503
  12. 5-FU [Suspect]
     Active Substance: FLUOROURACIL
     Dates: start: 2010, end: 201010
  13. LEUCOVORIN. [Suspect]
     Active Substance: LEUCOVORIN
     Dates: start: 201505, end: 201506
  14. FOLSAEURE [Suspect]
     Active Substance: FOLIC ACID
     Indication: PRODUCT USED FOR UNKNOWN INDICATION
     Dates: start: 200907, end: 200907
  15. IRINOTECAN (MANUFACTURER UNKNOWN) [Suspect]
     Active Substance: IRINOTECAN
     Indication: PRODUCT USED FOR UNKNOWN INDICATION
     Route: 065
     Dates: start: 200907, end: 200910
  16. OXALIPLATIN (MANUFACTURER UNKNOWN) [Suspect]
     Active Substance: OXALIPLATIN
     Indication: PRODUCT USED FOR UNKNOWN INDICATION
     Route: 065
     Dates: start: 200907, end: 200910

REACTIONS (1)
  - Acute lymphocytic leukaemia [Not Recovered/Not Resolved]

NARRATIVE: CASE EVENT DATE: 201507
